FAERS Safety Report 7455034-X (Version None)
Quarter: 2011Q2

REPORT INFORMATION
  Report Type: 
  Country: None (occurrence: None)
  Receive Date: 20110503
  Receipt Date: 20110421
  Transmission Date: 20111010
  Serious: Yes (Other)
  Sender: FDA-Public Use
  Company Number: CA-BRISTOL-MYERS SQUIBB COMPANY-15568728

PATIENT
  Age: 35 Year
  Sex: Female

DRUGS (6)
  1. FOLIC ACID [Concomitant]
  2. NAPROXEN [Concomitant]
  3. ORENCIA [Suspect]
     Indication: RHEUMATOID ARTHRITIS
     Dosage: LAST INF ON 03FEB2011 NO OF INF :5
     Route: 042
     Dates: start: 20100922
  4. METHOTREXATE [Concomitant]
     Dosage: METHOTREXATE INJECTION
  5. PREDNISONE [Concomitant]
  6. SULFASALAZINE [Concomitant]

REACTIONS (2)
  - DEEP VEIN THROMBOSIS [None]
  - KNEE OPERATION [None]
